FAERS Safety Report 17577375 (Version 2)
Quarter: 2020Q1

REPORT INFORMATION
  Report Type: Spontaneous
  Country: HR (occurrence: HR)
  Receive Date: 20200324
  Receipt Date: 20200327
  Transmission Date: 20200409
  Serious: Yes (Other)
  Sender: FDA-Public Use
  Company Number: HR-TEVA-2020-HR-1211228

PATIENT
  Age: 91 Year
  Sex: Female

DRUGS (5)
  1. CEFUROXIM [Suspect]
     Active Substance: CEFUROXIME
     Dosage: 5000 MG
     Route: 048
     Dates: start: 20191031, end: 20191031
  2. AMLODIPINE [Suspect]
     Active Substance: AMLODIPINE BESYLATE
     Dosage: 50 MG
     Route: 048
     Dates: start: 20191031, end: 20191031
  3. LOSARTAN. [Suspect]
     Active Substance: LOSARTAN
     Dosage: 450 MG
     Route: 048
     Dates: start: 20191031, end: 20191031
  4. ALPRAZOLAM. [Suspect]
     Active Substance: ALPRAZOLAM
     Dosage: 6 MG
     Route: 048
     Dates: start: 20191031, end: 20191031
  5. HYDROCHLOROTHIAZIDE. [Suspect]
     Active Substance: HYDROCHLOROTHIAZIDE
     Dosage: 112.5 MG
     Route: 048
     Dates: start: 20191031, end: 20191031

REACTIONS (3)
  - Intentional overdose [Unknown]
  - Suicide attempt [Unknown]
  - Atrial fibrillation [Unknown]

NARRATIVE: CASE EVENT DATE: 20191031
